FAERS Safety Report 16930223 (Version 2)
Quarter: 2020Q1

REPORT INFORMATION
  Report Type: Spontaneous
  Country: US (occurrence: US)
  Receive Date: 20191017
  Receipt Date: 20200216
  Transmission Date: 20200409
  Serious: No
  Sender: FDA-Public Use
  Company Number: US-TEVA-2019-US-1122630

PATIENT
  Age: 7 Decade
  Sex: Male

DRUGS (2)
  1. BUTRANS [Concomitant]
     Active Substance: BUPRENORPHINE
     Indication: PAIN
  2. AJOVY [Suspect]
     Active Substance: FREMANEZUMAB-VFRM
     Route: 065

REACTIONS (1)
  - Headache [Unknown]
